FAERS Safety Report 13473508 (Version 1)
Quarter: 2017Q2

REPORT INFORMATION
  Report Type: Spontaneous
  Country: US (occurrence: US)
  Receive Date: 20170424
  Receipt Date: 20170424
  Transmission Date: 20170830
  Serious: No
  Sender: FDA-Public Use
  Company Number: US-BRACCO-014338

PATIENT
  Sex: Female

DRUGS (1)
  1. BARIUM SULPHATE [Suspect]
     Active Substance: BARIUM SULFATE
     Indication: BARIUM SWALLOW
     Route: 048
     Dates: start: 201701, end: 201701

REACTIONS (2)
  - Product colour issue [Unknown]
  - Product taste abnormal [Unknown]

NARRATIVE: CASE EVENT DATE: 201701
